FAERS Safety Report 4545121-8 (Version None)
Quarter: 2005Q1

REPORT INFORMATION
  Report Type: 
  Country: None (occurrence: None)
  Receive Date: 20050104
  Receipt Date: 20050104
  Transmission Date: 20050727
  Serious: Yes (Other)
  Sender: FDA-Public Use
  Company Number: None

PATIENT
  Sex: Male
  Weight: 71 kg

DRUGS (1)
  1. EZETIMIBE 10 MG [Suspect]
     Indication: HYPERLIPIDAEMIA
     Dosage: 10 MG PO QD
     Route: 048
     Dates: start: 20030601, end: 20031001

REACTIONS (2)
  - ABDOMINAL DISTENSION [None]
  - FLATULENCE [None]
